FAERS Safety Report 16304501 (Version 1)
Quarter: 2019Q2

REPORT INFORMATION
  Report Type: Spontaneous
  Country: US (occurrence: US)
  Receive Date: 20190510
  Receipt Date: 20190510
  Transmission Date: 20190711
  Serious: Yes (Other)
  Sender: FDA-Public Use
  Company Number: None

PATIENT
  Age: 65 Year
  Sex: Female
  Weight: 62.1 kg

DRUGS (2)
  1. VENLAFAXINE HCL CAPS [Suspect]
     Active Substance: VENLAFAXINE HYDROCHLORIDE
     Indication: DEPRESSION
     Route: 048
     Dates: start: 20190508, end: 20190508
  2. VENLAFAXINE HCL CAPS [Suspect]
     Active Substance: VENLAFAXINE HYDROCHLORIDE
     Indication: ANXIETY
     Route: 048
     Dates: start: 20190508, end: 20190508

REACTIONS (3)
  - Dizziness [None]
  - Blood pressure increased [None]
  - Micturition urgency [None]

NARRATIVE: CASE EVENT DATE: 20190501
